FAERS Safety Report 19007120 (Version 4)
Quarter: 2021Q2

REPORT INFORMATION
  Report Type: Spontaneous
  Country: US (occurrence: US)
  Receive Date: 20210315
  Receipt Date: 20210507
  Transmission Date: 20210717
  Serious: Yes (Other)
  Sender: FDA-Public Use
  Company Number: US-GLENMARK PHARMACEUTICALS-2021GMK052640

PATIENT

DRUGS (1)
  1. RANITIDINE TABLETS USP, 150 MG [Suspect]
     Active Substance: RANITIDINE HYDROCHLORIDE
     Indication: GASTROOESOPHAGEAL REFLUX DISEASE
     Dosage: UNK (EXPIRY DATE: 2019, 2018, 2019, 2020, 2020)
     Route: 048

REACTIONS (5)
  - Illness [Unknown]
  - Bladder cancer [Unknown]
  - Recalled product administered [Unknown]
  - Product quality issue [Unknown]
  - Prostate cancer [Unknown]
